FAERS Safety Report 15455713 (Version 2)
Quarter: 2018Q4

REPORT INFORMATION
  Report Type: Spontaneous
  Country: US (occurrence: US)
  Receive Date: 20181002
  Receipt Date: 20181009
  Transmission Date: 20190204
  Serious: Yes (Other)
  Sender: FDA-Public Use
  Company Number: US-PFIZER INC-2018394251

PATIENT
  Age: 57 Year
  Sex: Female

DRUGS (7)
  1. PIPERACILLIN AND TAZOBACTAM [Concomitant]
     Active Substance: PIPERACILLIN SODIUM\TAZOBACTAM SODIUM
     Dosage: 3.375 G, 3X/DAY (EVERY 8 HOURS BY EXTENDED INFUSION, (THROUGH DAY 6))
     Route: 042
  2. IBUPROFEN. [Concomitant]
     Active Substance: IBUPROFEN
     Indication: PAIN
     Dosage: 800 MG, 3X/DAY (EVERY 8 HOURS)
  3. TOBRAMYCIN. [Suspect]
     Active Substance: TOBRAMYCIN
     Indication: KNEE ARTHROPLASTY
     Dosage: 7.2 G, UNK
  4. VANCOMYCIN HCL [Suspect]
     Active Substance: VANCOMYCIN HYDROCHLORIDE
     Dosage: UNK (VANCOMYCIN DOSED FOR GOAL TROUGH 15 TO 20 MG/L (THROUGH DAY 20)
  5. PALACOS CUM GENTAMICIN [Suspect]
     Active Substance: GENTAMICIN SULFATE
     Indication: KNEE ARTHROPLASTY
     Dosage: 1.5 G, UNK
  6. PALACOS CUM GENTAMICIN [Suspect]
     Active Substance: GENTAMICIN SULFATE
     Dosage: 120 G, UNK (120 G OF PALACOS R + G) (THREE 40-G BATCHES)
  7. VANCOMYCIN HCL [Suspect]
     Active Substance: VANCOMYCIN HYDROCHLORIDE
     Indication: KNEE ARTHROPLASTY
     Dosage: 9 G, UNK
     Route: 042

REACTIONS (3)
  - Blood creatinine increased [Recovered/Resolved]
  - Nephropathy toxic [Recovering/Resolving]
  - Acute kidney injury [Recovering/Resolving]
